FAERS Safety Report 15788659 (Version 3)
Quarter: 2019Q1

REPORT INFORMATION
  Report Type: Report from Study
  Country: US (occurrence: US)
  Receive Date: 20190104
  Receipt Date: 20190314
  Transmission Date: 20190417
  Serious: Yes (Hospitalization, Other)
  Sender: FDA-Public Use
  Company Number: US-ASTELLAS-2018US051362

PATIENT
  Age: 76 Year
  Sex: Male

DRUGS (1)
  1. ENZALUTAMIDE [Suspect]
     Active Substance: ENZALUTAMIDE
     Indication: PROSTATE CANCER
     Route: 048
     Dates: end: 201812

REACTIONS (7)
  - Disturbance in attention [Unknown]
  - Malignant neoplasm progression [Unknown]
  - Wrong technique in product usage process [Unknown]
  - Dementia [Unknown]
  - Dehydration [Unknown]
  - Lethargy [Unknown]
  - Dysphagia [Unknown]

NARRATIVE: CASE EVENT DATE: 201812
